FAERS Safety Report 4791686-0 (Version None)
Quarter: 2005Q4

REPORT INFORMATION
  Report Type: 
  Country: None (occurrence: None)
  Receive Date: 20051007
  Receipt Date: 20051005
  Transmission Date: 20060501
  Serious: Yes (Other)
  Sender: FDA-Public Use
  Company Number: US-GLAXOSMITHKLINE-A0577216A

PATIENT
  Age: 74 Year
  Sex: Female

DRUGS (5)
  1. AVANDIA [Suspect]
     Dosage: 2MG PER DAY
     Route: 048
  2. GLUCOPHAGE [Concomitant]
  3. SYNTHROID [Concomitant]
  4. GLUCOTROL [Concomitant]
  5. LOVASTATIN [Concomitant]

REACTIONS (1)
  - HEPATIC NEOPLASM MALIGNANT [None]
